FAERS Safety Report 6072184-3 (Version None)
Quarter: 2009Q1

REPORT INFORMATION
  Report Type: 
  Country: None (occurrence: None)
  Receive Date: 20090210
  Receipt Date: 20090203
  Transmission Date: 20090719
  Serious: Yes (Life-Threatening, Hospitalization, Other)
  Sender: FDA-Public Use
  Company Number: AT-PURDUE-DEU_2008_0004911

PATIENT
  Age: 18 Year
  Sex: Male

DRUGS (5)
  1. MORPHINE [Suspect]
     Indication: DRUG ABUSE
     Route: 065
  2. SOMNUBENE [Suspect]
  3. CANNABIS [Suspect]
  4. BENZODIAZEPINE DERIVATIVES [Suspect]
  5. METHYLENEDIOXYAMPHETAMINE [Suspect]

REACTIONS (9)
  - CARDIAC ARREST [None]
  - DRUG ABUSE [None]
  - HYPERTENSION [None]
  - HYPOXIC ENCEPHALOPATHY [None]
  - LOSS OF CONSCIOUSNESS [None]
  - MULTI-ORGAN FAILURE [None]
  - MULTIPLE DRUG OVERDOSE [None]
  - RHABDOMYOLYSIS [None]
  - VOMITING [None]
